FAERS Safety Report 10142976 (Version 1)
Quarter: 2014Q2

REPORT INFORMATION
  Report Type: Spontaneous
  Country: US (occurrence: None)
  Receive Date: 20140428
  Receipt Date: 20140428
  Transmission Date: 20141212
  Serious: Yes (Other)
  Sender: FDA-Public Use
  Company Number: None

PATIENT
  Age: 6 Year
  Sex: Male

DRUGS (1)
  1. MERCAPTOPURINE [Suspect]
     Indication: TRANSPLANT
     Dosage: 50 MG TAKE 1/2 TABLET DAILY
     Route: 048
     Dates: start: 20140401

REACTIONS (1)
  - Incontinence [None]
